FAERS Safety Report 5528590-6 (Version None)
Quarter: 2007Q4

REPORT INFORMATION
  Report Type: 
  Country: None (occurrence: None)
  Receive Date: 20071126
  Receipt Date: 20071030
  Transmission Date: 20080405
  Serious: Yes (Hospitalization, Disabling)
  Sender: FDA-Public Use
  Company Number: M-07-0962

PATIENT
  Age: 51 Year
  Sex: Female

DRUGS (7)
  1. PACERONE [Suspect]
     Indication: ATRIAL FIBRILLATION
     Dosage: 300 MG PO QD
     Route: 048
     Dates: start: 20010701, end: 20011113
  2. PACERONE [Suspect]
     Indication: ATRIAL FIBRILLATION
     Dosage: 400 MG PO QD
     Route: 048
     Dates: start: 20010626, end: 20010701
  3. PACERONE [Suspect]
     Indication: ATRIAL FIBRILLATION
     Dosage: 200 MG PO QD
     Route: 048
     Dates: start: 20001101, end: 20010626
  4. CORDARONE [Suspect]
     Indication: ATRIAL FIBRILLATION
     Dosage: SEE IMAGE
     Route: 048
     Dates: start: 19990901, end: 20001101
  5. LASIX [Concomitant]
  6. POTASSIUM CHLORIDE [Concomitant]
  7. COUMADIN [Concomitant]

REACTIONS (5)
  - INTERSTITIAL LUNG DISEASE [None]
  - PNEUMONIA [None]
  - PULMONARY FIBROSIS [None]
  - PULMONARY TOXICITY [None]
  - WEIGHT DECREASED [None]
